FAERS Safety Report 18122284 (Version 1)
Quarter: 2020Q3

REPORT INFORMATION
  Report Type: Report from Study
  Country: US (occurrence: US)
  Receive Date: 20200807
  Receipt Date: 20200807
  Transmission Date: 20201103
  Serious: Yes (Hospitalization)
  Sender: FDA-Public Use
  Company Number: US-EMD SERONO-9138991

PATIENT
  Age: 55 Year
  Sex: Female

DRUGS (2)
  1. MAVENCLAD [Suspect]
     Active Substance: CLADRIBINE
     Indication: MULTIPLE SCLEROSIS
     Dosage: YEAR ONE MONTH ONE TREATMENT.
     Route: 048
     Dates: start: 20191101
  2. MAVENCLAD [Suspect]
     Active Substance: CLADRIBINE
     Dosage: YEAR ONE MONTH TWO TREATMENT.
     Route: 048

REACTIONS (3)
  - Influenza [Recovering/Resolving]
  - Asthenia [Recovering/Resolving]
  - Dysstasia [Recovering/Resolving]

NARRATIVE: CASE EVENT DATE: 201912
